FAERS Safety Report 18431761 (Version 1)
Quarter: 2020Q4

REPORT INFORMATION
  Report Type: Spontaneous
  Country: US (occurrence: US)
  Receive Date: 20201027
  Receipt Date: 20201027
  Transmission Date: 20210114
  Serious: No
  Sender: FDA-Public Use
  Company Number: US-GLENMARK PHARMACEUTICALS-2020GMK049279

PATIENT

DRUGS (1)
  1. APREPITANT CAPSULES USP [80MG] [Suspect]
     Active Substance: APREPITANT
     Indication: PRURITUS
     Dosage: 80 MILLIGRAM, HS
     Route: 048

REACTIONS (2)
  - No adverse event [Unknown]
  - Product use in unapproved indication [Unknown]
